FAERS Safety Report 5027597-5 (Version None)
Quarter: 2006Q2

REPORT INFORMATION
  Report Type: 
  Country: None (occurrence: None)
  Receive Date: 20060428
  Receipt Date: 20051230
  Transmission Date: 20061013
  Serious: No
  Sender: FDA-Public Use
  Company Number: COT_0369_2006

PATIENT
  Age: 56 Year
  Sex: Male
  Weight: 136.0791 kg

DRUGS (13)
  1. VENTAVIS [Suspect]
     Indication: PULMONARY HYPERTENSION
     Dosage: 5 MCG 9XD IH
     Dates: start: 20051228
  2. K-DUR 10 [Concomitant]
  3. TYLENOL (CAPLET) [Concomitant]
  4. FUROSEMIDE [Concomitant]
  5. ZAROXOLYN [Concomitant]
  6. LIPITOR [Concomitant]
  7. PLAVIX [Concomitant]
  8. ARAVA [Concomitant]
  9. METOPROLOL TARTRATE [Concomitant]
  10. ASPIRIN [Concomitant]
  11. GLUCOPHAGE [Concomitant]
  12. MULTIVITAMIN [Concomitant]
  13. OXYGEN [Concomitant]

REACTIONS (1)
  - DRY MOUTH [None]
